FAERS Safety Report 23033958 (Version 2)
Quarter: 2023Q4

REPORT INFORMATION
  Report Type: Spontaneous
  Country: AR (occurrence: AR)
  Receive Date: 20231005
  Receipt Date: 20231009
  Transmission Date: 20240110
  Serious: Yes (Hospitalization, Other)
  Sender: FDA-Public Use
  Company Number: AR-SA-SAC20230914000260

PATIENT
  Age: 1 Year
  Sex: Male

DRUGS (8)
  1. CEREZYME [Suspect]
     Active Substance: IMIGLUCERASE
     Indication: Gaucher^s disease
     Dosage: 120 IU/KG, Q15D
     Route: 065
     Dates: start: 20230825
  2. CEREZYME [Suspect]
     Active Substance: IMIGLUCERASE
     Dosage: 60 IU/KG, Q15D
     Route: 065
     Dates: start: 2023
  3. OMEPRAZOLE [Concomitant]
     Active Substance: OMEPRAZOLE
     Indication: Gastrooesophageal reflux disease
     Dosage: 6 MG, QD
     Route: 048
  4. FERROUS SULFATE [Concomitant]
     Active Substance: FERROUS SULFATE
     Indication: Iron deficiency anaemia
     Dosage: 0.32 ML, BID
     Route: 048
  5. SPIRONOLACTONE [Concomitant]
     Active Substance: SPIRONOLACTONE
     Indication: Viral infection
     Dosage: 3 MG/KG
     Route: 048
  6. ZINC [Concomitant]
     Active Substance: ZINC
     Indication: Blood zinc decreased
     Dosage: 10 MG, QD
     Route: 048
  7. OXYGEN [Concomitant]
     Active Substance: OXYGEN
     Indication: Respiratory syncytial virus infection
     Dosage: UNK
     Route: 045
  8. OXYGEN [Concomitant]
     Active Substance: OXYGEN
     Indication: Oxygen saturation decreased

REACTIONS (9)
  - Thrombocytopenia [Unknown]
  - Anaemia [Unknown]
  - Hypotonia [Unknown]
  - Malnutrition [Unknown]
  - Bronchospasm [Recovered/Resolved]
  - Lung disorder [Unknown]
  - Skin test positive [Unknown]
  - Rash macular [Unknown]
  - Pyrexia [Unknown]

NARRATIVE: CASE EVENT DATE: 20230801
